FAERS Safety Report 15814420 (Version 1)
Quarter: 2019Q1

REPORT INFORMATION
  Report Type: Spontaneous
  Country: GB (occurrence: GB)
  Receive Date: 20190111
  Receipt Date: 20190111
  Transmission Date: 20190417
  Serious: Yes (Other)
  Sender: FDA-Public Use
  Company Number: GB-PFIZER INC-HQWYE190814MAY03

PATIENT
  Age: 21 Year
  Sex: Female

DRUGS (3)
  1. NEORAL [Interacting]
     Active Substance: CYCLOSPORINE
     Indication: IMMUNOSUPPRESSANT DRUG THERAPY
     Dosage: UNSPECIFIED DOSE
  2. RAPAMUNE [Suspect]
     Active Substance: SIROLIMUS
     Indication: IMMUNOSUPPRESSION
     Dosage: UNSPECIFIED DOSE
     Route: 048
  3. TACROLIMUS. [Interacting]
     Active Substance: TACROLIMUS
     Indication: IMMUNOSUPPRESSANT DRUG THERAPY
     Dosage: UNSPECIFIED DOSE

REACTIONS (2)
  - Potentiating drug interaction [Recovered/Resolved]
  - Thrombotic microangiopathy [Recovered/Resolved]
